FAERS Safety Report 5103021-9 (Version None)
Quarter: 2006Q3

REPORT INFORMATION
  Report Type: 
  Country: None (occurrence: None)
  Receive Date: 20060908
  Receipt Date: 20060831
  Transmission Date: 20061208
  Serious: Yes (Other)
  Sender: FDA-Public Use
  Company Number: GXKR2006TW05322

PATIENT
  Age: 18 Year
  Sex: Female

DRUGS (3)
  1. HALOPERIDOL [Suspect]
     Indication: ACUTE PSYCHOSIS
     Dosage: 2 MG, BID, INTRAMUSCULAR
     Route: 030
  2. MORPHINE [Suspect]
     Indication: CANCER PAIN
     Dosage: SEE IMAGE
  3. NALOXONE [Suspect]
     Indication: REVERSAL OF OPIATE ACTIVITY
     Dosage: SEE IMAGE
     Route: 042

REACTIONS (9)
  - DRUG TOXICITY [None]
  - DYSPNOEA [None]
  - EXTRAPYRAMIDAL DISORDER [None]
  - LOSS OF CONSCIOUSNESS [None]
  - MIOSIS [None]
  - OCULOGYRATION [None]
  - OVERDOSE [None]
  - RESTLESSNESS [None]
  - TORTICOLLIS [None]
